FAERS Safety Report 11190297 (Version 1)
Quarter: 2015Q2

REPORT INFORMATION
  Report Type: Report from Study
  Country: AU (occurrence: AU)
  Receive Date: 20150615
  Receipt Date: 20150615
  Transmission Date: 20150821
  Serious: Yes (Hospitalization, Other)
  Sender: FDA-Public Use
  Company Number: PHHY2015AU008725

PATIENT
  Age: 32 Year
  Sex: Male
  Weight: 92.8 kg

DRUGS (7)
  1. LORAZEPAM. [Concomitant]
     Active Substance: LORAZEPAM
     Dosage: 1 MG, QID
     Route: 048
     Dates: start: 20150121
  2. LORAZEPAM. [Concomitant]
     Active Substance: LORAZEPAM
     Indication: AGITATION
     Dosage: 1 MG, TID
     Route: 048
  3. CLOZARIL [Suspect]
     Active Substance: CLOZAPINE
     Indication: PSYCHOTIC DISORDER
  4. ATORVASTATIN [Concomitant]
     Active Substance: ATORVASTATIN
     Indication: HYPERCHOLESTEROLAEMIA
     Dosage: 40 MG, QD (AT NIGHT)
     Route: 048
     Dates: end: 20150107
  5. SODIUM VALPROATE [Concomitant]
     Active Substance: VALPROATE SODIUM
     Indication: MOOD ALTERED
     Dosage: 1400 MG, QD (400 MG IN THE MORNING AND 1000 MG AT NIGHT)
     Route: 048
  6. BENZTROPINE [Concomitant]
     Active Substance: BENZTROPINE
     Indication: EXTRAPYRAMIDAL DISORDER
     Dosage: 2 MG, QD (IN THE MORNING)
     Route: 048
  7. CLOZARIL [Suspect]
     Active Substance: CLOZAPINE
     Indication: SCHIZOPHRENIA
     Dosage: 625 MG, QD (175 MG AT NOON AND 450 MG AT NIGHT)
     Route: 048
     Dates: start: 20091224, end: 20150107

REACTIONS (44)
  - Blood chloride decreased [Recovered/Resolved]
  - Blood osmolarity decreased [Recovered/Resolved]
  - Blood osmolarity decreased [Recovered/Resolved]
  - Blood osmolarity decreased [Recovered/Resolved]
  - Blood sodium decreased [Recovered/Resolved]
  - Blood sodium decreased [Recovered/Resolved]
  - Blood sodium decreased [Recovered/Resolved]
  - Globulins decreased [Recovered/Resolved]
  - Blood creatinine decreased [Recovered/Resolved]
  - Blood creatinine decreased [Recovered/Resolved]
  - Rhabdomyolysis [Unknown]
  - Blood osmolarity decreased [Recovered/Resolved]
  - Blood phosphorus decreased [Recovered/Resolved]
  - Blood urea decreased [Recovered/Resolved]
  - Blood creatinine decreased [Recovered/Resolved]
  - Sinus tachycardia [Unknown]
  - Blood chloride decreased [Recovered/Resolved]
  - Blood chloride decreased [Recovered/Resolved]
  - Blood osmolarity decreased [Recovered/Resolved]
  - Blood urea decreased [Recovered/Resolved]
  - Blood urea nitrogen/creatinine ratio decreased [Recovered/Resolved]
  - Blood urea nitrogen/creatinine ratio decreased [Recovered/Resolved]
  - Neuroleptic malignant syndrome [Recovering/Resolving]
  - Blood osmolarity decreased [Recovered/Resolved]
  - Blood sodium decreased [Recovered/Resolved]
  - Blood urea nitrogen/creatinine ratio decreased [Recovered/Resolved]
  - Blood sodium decreased [Recovered/Resolved]
  - Blood phosphorus increased [Recovered/Resolved]
  - Blood urea decreased [Recovered/Resolved]
  - Blood creatinine decreased [Recovered/Resolved]
  - Myopathy [Unknown]
  - Blood chloride decreased [Recovered/Resolved]
  - Blood chloride decreased [Recovered/Resolved]
  - Anion gap decreased [Recovered/Resolved]
  - Blood urea nitrogen/creatinine ratio decreased [Recovered/Resolved]
  - Blood creatinine decreased [Recovered/Resolved]
  - Blood chloride decreased [Recovered/Resolved]
  - Blood sodium decreased [Recovered/Resolved]
  - Anion gap decreased [Recovered/Resolved]
  - Blood phosphorus decreased [Recovered/Resolved]
  - Blood phosphorus increased [Recovered/Resolved]
  - Blood urea decreased [Recovered/Resolved]
  - Blood urea nitrogen/creatinine ratio decreased [Recovered/Resolved]
  - Blood alkaline phosphatase decreased [Recovered/Resolved]

NARRATIVE: CASE EVENT DATE: 20141209
